FAERS Safety Report 9393082 (Version 1)
Quarter: 2013Q3

REPORT INFORMATION
  Report Type: Spontaneous
  Country: SE (occurrence: SE)
  Receive Date: 20130710
  Receipt Date: 20130710
  Transmission Date: 20140515
  Serious: Yes (Other)
  Sender: FDA-Public Use
  Company Number: SE-SANOFI-AVENTIS-2013SA066426

PATIENT
  Age: 69 Year
  Sex: Female

DRUGS (11)
  1. MULTAQ [Suspect]
     Indication: ATRIAL FIBRILLATION
     Route: 048
     Dates: start: 201303, end: 20130501
  2. SPIRIVA [Concomitant]
  3. BISOPROLOL [Concomitant]
  4. CETIRIZINE [Concomitant]
  5. LANSOPRAZOLE [Concomitant]
  6. WARFARIN [Concomitant]
  7. BRICANYL TURBUHALER [Concomitant]
  8. ACETYLCYSTEINE [Concomitant]
  9. VENTOLINE DISKUS [Concomitant]
  10. SINGULAIR [Concomitant]
  11. SERETIDE DISKUS [Concomitant]

REACTIONS (2)
  - Alopecia [Unknown]
  - Drug ineffective [Unknown]
